FAERS Safety Report 17955045 (Version 2)
Quarter: 2021Q2

REPORT INFORMATION
  Report Type: Spontaneous
  Country: JP (occurrence: JP)
  Receive Date: 20200629
  Receipt Date: 20210628
  Transmission Date: 20210717
  Serious: Yes (Hospitalization, Disabling)
  Sender: FDA-Public Use
  Company Number: JP-TEVA-2020-JP-004223J

PATIENT
  Age: 50 Year
  Sex: Female

DRUGS (1)
  1. DIAZEPAM INJECTION 10MG ^TAIYO^ [Suspect]
     Active Substance: DIAZEPAM
     Indication: PRODUCT USED FOR UNKNOWN INDICATION
     Route: 065
     Dates: start: 201812, end: 201812

REACTIONS (4)
  - Cardio-respiratory arrest [Unknown]
  - Respiratory depression [Unknown]
  - Hypoxic-ischaemic encephalopathy [Unknown]
  - Cerebral disorder [Unknown]
